FAERS Safety Report 4800673-5 (Version None)
Quarter: 2005Q3

REPORT INFORMATION
  Report Type: 
  Country: None (occurrence: None)
  Receive Date: 20050929
  Receipt Date: 20050907
  Transmission Date: 20060218
  Serious: Yes (Death)
  Sender: FDA-Public Use
  Company Number: 2005BH002060

PATIENT

DRUGS (6)
  1. VINORELBINE TARTRATE [Suspect]
     Indication: NON-SMALL CELL LUNG CANCER
  2. CISPLATIN [Suspect]
     Indication: NON-SMALL CELL LUNG CANCER
  3. NORMAL SALINE [Concomitant]
  4. METOCLOPRAMIDE [Concomitant]
  5. DEXAMETHASONE [Concomitant]
  6. HT3 [Concomitant]

REACTIONS (2)
  - NEUTROPENIA [None]
  - PNEUMONIA [None]
